FAERS Safety Report 8698904 (Version 2)
Quarter: 2013Q4

REPORT INFORMATION
  Report Type: Spontaneous
  Country: ES (occurrence: ES)
  Receive Date: 20120802
  Receipt Date: 20131022
  Transmission Date: 20140711
  Serious: Yes (Hospitalization)
  Sender: FDA-Public Use
  Company Number: ES-ROCHE-1093725

PATIENT
  Age: 50 Year
  Sex: Female
  Weight: 65 kg

DRUGS (4)
  1. PEGASYS [Suspect]
     Indication: CHRONIC HEPATITIS C
     Route: 058
     Dates: start: 20120322, end: 20120519
  2. COPEGUS [Suspect]
     Indication: PRODUCT USED FOR UNKNOWN INDICATION
     Route: 048
     Dates: start: 20120323, end: 20120519
  3. VICTRELIS [Suspect]
     Indication: HEPATIC CIRRHOSIS
     Route: 048
     Dates: start: 20120322, end: 20120519
  4. VICTRELIS [Suspect]
     Indication: HEPATITIS C

REACTIONS (4)
  - Transfusion reaction [Recovered/Resolved]
  - Angina pectoris [Recovered/Resolved]
  - Thrombocytopenia [Unknown]
  - Haemolytic anaemia [Unknown]
